FAERS Safety Report 12974849 (Version 3)
Quarter: 2018Q2

REPORT INFORMATION
  Report Type: Spontaneous
  Country: US (occurrence: US)
  Receive Date: 20161125
  Receipt Date: 20180410
  Transmission Date: 20180711
  Serious: Yes (Other)
  Sender: FDA-Public Use
  Company Number: US-LUPIN PHARMACEUTICALS INC.-2016-05216

PATIENT
  Age: 61 Year
  Sex: Female

DRUGS (3)
  1. MAGNESIUM CITRATE /01486801/ [Interacting]
     Active Substance: MAGNESIUM CITRATE
     Indication: PRODUCT USED FOR UNKNOWN INDICATION
     Dosage: 200 MG,BID,
     Route: 065
  2. CALCIUM CARBONATE. [Interacting]
     Active Substance: CALCIUM CARBONATE
     Indication: MINERAL SUPPLEMENTATION
     Dosage: 1200 MG, QD, WITH MEALS SINCE SURGERY
     Route: 065
  3. OMEPRAZOLE. [Suspect]
     Active Substance: OMEPRAZOLE
     Indication: HELICOBACTER GASTRITIS
     Dosage: UNK
     Route: 065

REACTIONS (4)
  - Hypocalcaemia [Recovered/Resolved]
  - Drug interaction [Unknown]
  - Tetany [Unknown]
  - Electrocardiogram QT prolonged [Recovered/Resolved]
